FAERS Safety Report 17498345 (Version 1)
Quarter: 2020Q1

REPORT INFORMATION
  Report Type: Spontaneous
  Country: US (occurrence: US)
  Receive Date: 20200304
  Receipt Date: 20200304
  Transmission Date: 20200409
  Serious: No
  Sender: FDA-Public Use
  Company Number: US-TARO-2019TAR00819

PATIENT
  Age: 80 Year
  Sex: Female

DRUGS (22)
  1. TRIAMCINOLONE ACETONIDE CREAM USP 0.1% [Suspect]
     Active Substance: TRIAMCINOLONE ACETONIDE
     Indication: VULVOVAGINAL PRURITUS
  2. METRONIDAZOLE VAGINAL [Suspect]
     Active Substance: METRONIDAZOLE
     Indication: VULVOVAGINAL PRURITUS
  3. ESTRADIOL. [Suspect]
     Active Substance: ESTRADIOL
     Indication: VULVOVAGINAL PRURITUS
  4. NYSTATIN CREAM USP 100,000 UNITS/G [Suspect]
     Active Substance: NYSTATIN
     Indication: VULVOVAGINAL PRURITUS
  5. MONISTAT 1 COMBINATION PACK [Suspect]
     Active Substance: MICONAZOLE NITRATE
     Indication: VULVOVAGINAL PRURITUS
  6. METRONIDAZOLE VAGINAL [Suspect]
     Active Substance: METRONIDAZOLE
     Indication: VULVOVAGINAL PRURITUS
  7. ESTRADIOL. [Suspect]
     Active Substance: ESTRADIOL
     Indication: VULVOVAGINAL PRURITUS
  8. VAGISIL ANTI ITCH MAXIMUM STRENGTH [Suspect]
     Active Substance: BENZOCAINE\RESORCINOL
     Indication: VULVOVAGINAL PRURITUS
  9. PRAMOSONE [Suspect]
     Active Substance: HYDROCORTISONE ACETATE\PRAMOXINE HYDROCHLORIDE
     Indication: VULVOVAGINAL PRURITUS
  10. PRAMOSONE [Suspect]
     Active Substance: HYDROCORTISONE ACETATE\PRAMOXINE HYDROCHLORIDE
     Indication: VULVOVAGINAL PRURITUS
  11. NYSTATIN CREAM USP 100,000 UNITS/G [Suspect]
     Active Substance: NYSTATIN
     Indication: VULVOVAGINAL PRURITUS
  12. VAGISIL ANTI ITCH ORIGINAL STRENGTH [Suspect]
     Active Substance: BENZOCAINE\RESORCINOL
     Indication: VULVOVAGINAL PRURITUS
  13. VAGISIL ANTI ITCH ORIGINAL STRENGTH [Suspect]
     Active Substance: BENZOCAINE\RESORCINOL
     Indication: VULVOVAGINAL PRURITUS
  14. MONISTAT 1 COMBINATION PACK [Suspect]
     Active Substance: MICONAZOLE NITRATE
     Indication: VULVOVAGINAL PRURITUS
  15. VAGISIL ANTI ITCH MAXIMUM STRENGTH [Suspect]
     Active Substance: BENZOCAINE\RESORCINOL
     Indication: VULVOVAGINAL PRURITUS
  16. UNSPECIFIED OTHER PRODUCTS [Suspect]
     Active Substance: UNSPECIFIED INGREDIENT
     Indication: VULVOVAGINAL PRURITUS
  17. UNSPECIFIED OTHER PRODUCTS [Suspect]
     Active Substance: UNSPECIFIED INGREDIENT
     Indication: VULVOVAGINAL PRURITUS
  18. CLOTRIMAZOLE/BETAMETHASONE DIPROPIONATE CREAM USP 1%/0.05% [Suspect]
     Active Substance: BETAMETHASONE DIPROPIONATE\CLOTRIMAZOLE
     Indication: VULVOVAGINAL PRURITUS
  19. CALMOSEPTINE [Suspect]
     Active Substance: MENTHOL\ZINC OXIDE
     Indication: VULVOVAGINAL PRURITUS
  20. TRIAMCINOLONE ACETONIDE CREAM USP 0.1% [Suspect]
     Active Substance: TRIAMCINOLONE ACETONIDE
     Dosage: UNK
     Dates: start: 2019, end: 2019
  21. CLOTRIMAZOLE/BETAMETHASONE DIPROPIONATE CREAM USP 1%/0.05% [Suspect]
     Active Substance: BETAMETHASONE DIPROPIONATE\CLOTRIMAZOLE
     Indication: VULVOVAGINAL PRURITUS
     Dosage: UNK
     Dates: start: 201811, end: 201811
  22. CALMOSEPTINE [Suspect]
     Active Substance: MENTHOL\ZINC OXIDE
     Indication: VULVOVAGINAL PRURITUS

REACTIONS (2)
  - Drug ineffective for unapproved indication [Recovered/Resolved]
  - Drug ineffective [Recovered/Resolved]

NARRATIVE: CASE EVENT DATE: 2019
